FAERS Safety Report 8461477-8 (Version None)
Quarter: 2012Q2

REPORT INFORMATION
  Report Type: 
  Country: None (occurrence: None)
  Receive Date: 20120625
  Receipt Date: 20120615
  Transmission Date: 20120825
  Serious: Yes (Other)
  Sender: FDA-Public Use
  Company Number: BR-JNJFOC-20120609078

PATIENT
  Age: 9 Month
  Sex: Female

DRUGS (4)
  1. REMICADE [Suspect]
     Indication: CROHN'S DISEASE
     Route: 042
     Dates: start: 20120402
  2. REMICADE [Suspect]
     Indication: COLITIS
     Route: 042
     Dates: start: 20120402
  3. MESALAMINE [Concomitant]
     Route: 054
  4. AZATHIOPRINE [Concomitant]
     Route: 065

REACTIONS (1)
  - HEPATIC ENZYME INCREASED [None]
